FAERS Safety Report 6201177-8 (Version None)
Quarter: 2009Q2

REPORT INFORMATION
  Report Type: 
  Country: None (occurrence: None)
  Receive Date: 20090526
  Receipt Date: 20090519
  Transmission Date: 20091009
  Serious: Yes (Other)
  Sender: FDA-Public Use
  Company Number: FR-JNJFOC-20090401862

PATIENT
  Sex: Female
  Weight: 80 kg

DRUGS (2)
  1. HALDOL DECANOAS [Suspect]
     Indication: SCHIZOPHRENIA
     Route: 030
  2. TERCIAN [Concomitant]
     Indication: ANXIETY
     Dosage: 1 TO 3 UNIT PER 24 H
     Route: 048

REACTIONS (1)
  - VENOUS THROMBOSIS LIMB [None]
